FAERS Safety Report 21762612 (Version 1)
Quarter: 2022Q4

REPORT INFORMATION
  Report Type: Spontaneous
  Country: US (occurrence: None)
  Receive Date: 20221221
  Receipt Date: 20221221
  Transmission Date: 20230113
  Serious: No
  Sender: FDA-Public Use
  Company Number: None

PATIENT
  Age: 81 Year
  Sex: Female
  Weight: 65.77 kg

DRUGS (8)
  1. FIORICET [Suspect]
     Active Substance: ACETAMINOPHEN\BUTALBITAL\CAFFEINE
     Indication: Migraine
     Dosage: OTHER QUANTITY : 15 ;?FREQUENCY : AS NEEDED;?
     Route: 048
  2. ESCITALOPRAM [Concomitant]
     Active Substance: ESCITALOPRAM OXALATE
  3. PANTOPRAZOLE [Concomitant]
     Active Substance: PANTOPRAZOLE
  4. FAMOTIDINE [Concomitant]
     Active Substance: FAMOTIDINE
  5. ZALEPLON [Concomitant]
     Active Substance: ZALEPLON
  6. LOVASTATIN [Concomitant]
     Active Substance: LOVASTATIN
  7. IBPROFEN [Concomitant]
  8. ALKA-ZELSER [Concomitant]

REACTIONS (8)
  - Dizziness [None]
  - Rash [None]
  - Swelling face [None]
  - Erythema [None]
  - Blister [None]
  - Abscess of eyelid [None]
  - Vomiting [None]
  - Asthenia [None]

NARRATIVE: CASE EVENT DATE: 20221107
